FAERS Safety Report 5549274-4 (Version None)
Quarter: 2007Q4

REPORT INFORMATION
  Report Type: 
  Country: None (occurrence: None)
  Receive Date: 20071211
  Receipt Date: 20071129
  Transmission Date: 20080405
  Serious: Yes (Hospitalization)
  Sender: FDA-Public Use
  Company Number: US-ELI_LILLY_AND_COMPANY-US200712001188

PATIENT
  Sex: Female

DRUGS (4)
  1. BYETTA [Suspect]
     Dosage: 5 UG, UNKNOWN
     Dates: start: 20070124, end: 20070301
  2. GLIMEPIRIDE [Concomitant]
     Dosage: 4 UNK, 2/D
     Dates: start: 20070222
  3. LIPITOR [Concomitant]
     Dosage: 10 UNK, DAILY (1/D)
     Dates: start: 20070222
  4. LANTUS [Concomitant]
     Dosage: 25 UNK, EACH MORNING

REACTIONS (1)
  - PANCREATITIS [None]
